FAERS Safety Report 7668106-1 (Version None)
Quarter: 2011Q3

REPORT INFORMATION
  Report Type: 
  Country: None (occurrence: None)
  Receive Date: 20110808
  Receipt Date: 20110324
  Transmission Date: 20111222
  Serious: Yes (Other)
  Sender: FDA-Public Use
  Company Number: DE-UCBSA-029973

PATIENT
  Sex: Male

DRUGS (5)
  1. LEVOTHYROXINE SODIUM [Concomitant]
  2. KEPPRA [Suspect]
     Dates: start: 20100101
  3. ALLOPURINOL [Concomitant]
  4. METOPROLOL TARTRATE [Concomitant]
  5. LASIX [Concomitant]

REACTIONS (4)
  - HEPATITIS [None]
  - JAUNDICE CHOLESTATIC [None]
  - BLOOD BILIRUBIN INCREASED [None]
  - CHOLESTASIS [None]
